FAERS Safety Report 9630780 (Version 1)
Quarter: 2013Q4

REPORT INFORMATION
  Report Type: Spontaneous
  Country: US (occurrence: None)
  Receive Date: 20131015
  Receipt Date: 20131015
  Transmission Date: 20140711
  Serious: Yes (Hospitalization, Other)
  Sender: FDA-Public Use
  Company Number: AUR-APL-2013-08482

PATIENT
  Age: 63 Year
  Sex: 0
  Weight: 87.98 kg

DRUGS (13)
  1. SIMVASTATIN (SIMVASTATIN) [Suspect]
     Indication: CARDIAC DISORDER
  2. QUINAPRIL HCL (QUINAPRIL HYDROCHLORIDE) [Suspect]
     Indication: CORONARY ARTERY DISEASE
     Dosage: (10 MG, 1 IN 1 D)
     Route: 048
     Dates: start: 20090731, end: 20091212
  3. QUINAPRIL HCL (QUINAPRIL HYDROCHLORIDE) [Suspect]
     Indication: MYOCARDIAL INFARCTION
     Dosage: (10 MG, 1 IN 1 D)
     Route: 048
     Dates: start: 20090731, end: 20091212
  4. LOPRESSOR (METOPROLOL TARTRATE) [Suspect]
     Indication: HYPERTENSION
     Dosage: (25 MG 2 IN 1 D)
     Dates: start: 200908
  5. ZATIA (EZETIMIBE) [Concomitant]
  6. PLAVIX (CLOPIDOGREL BISULFATE) [Concomitant]
  7. ACETYLSALIYLIC ACID )ACETYLASALICYLIC ACID) [Concomitant]
  8. PROVERA (MEDROXYPROGESTERONE ACTETATE) [Concomitant]
  9. ALPRAZOLAM (ALPROZOLAM) [Concomitant]
  10. ESTRADIOL (ESTRADIOL) (GEL) [Concomitant]
  11. COVERA H-S (VERAPAMIL HYDROCHLORIDE) [Concomitant]
  12. XANAX (ALPRAZOLAM) [Concomitant]
  13. CALAN (VERAPAMIL HYDROCHLORIDE) [Concomitant]

REACTIONS (22)
  - Flushing [None]
  - Hyperhidrosis [None]
  - Asthenia [None]
  - Red blood cell count increased [None]
  - Blood magnesium increased [None]
  - High density lipoprotein decreased [None]
  - Lip swelling [None]
  - Gait disturbance [None]
  - Aphagia [None]
  - Decreased appetite [None]
  - Dysgeusia [None]
  - Nerve injury [None]
  - Myalgia [None]
  - Nausea [None]
  - Weight decreased [None]
  - Feeling abnormal [None]
  - Drug intolerance [None]
  - Hypoaesthesia [None]
  - Paraesthesia [None]
  - Erythema [None]
  - Eye swelling [None]
  - Activities of daily living impaired [None]
